FAERS Safety Report 17210161 (Version 2)
Quarter: 2020Q1

REPORT INFORMATION
  Report Type: Spontaneous
  Country: US (occurrence: US)
  Receive Date: 20191227
  Receipt Date: 20200113
  Transmission Date: 20200409
  Serious: Yes (Hospitalization)
  Sender: FDA-Public Use
  Company Number: US-BIOMARINAP-US-2019-127643

PATIENT
  Age: 32 Year
  Sex: Female

DRUGS (1)
  1. VIMIZIM [Suspect]
     Active Substance: ELOSULFASE ALFA
     Indication: MUCOPOLYSACCHARIDOSIS IV
     Dosage: UNK
     Route: 042
     Dates: start: 201503

REACTIONS (12)
  - Tinnitus [Not Recovered/Not Resolved]
  - Mental status changes [Unknown]
  - Asthenia [Unknown]
  - Hepatic enzyme increased [Recovering/Resolving]
  - Ulcerative keratitis [Unknown]
  - Pulmonary embolism [Unknown]
  - Deafness [Unknown]
  - Corneal abrasion [Recovering/Resolving]
  - Hypertension [Recovering/Resolving]
  - Blindness [Unknown]
  - Acute hepatic failure [Unknown]
  - Renal failure [Unknown]
